FAERS Safety Report 4550526-5 (Version None)
Quarter: 2005Q1

REPORT INFORMATION
  Report Type: 
  Country: None (occurrence: None)
  Receive Date: 20050111
  Receipt Date: 20050111
  Transmission Date: 20050727
  Serious: Yes (Other)
  Sender: FDA-Public Use
  Company Number: None

PATIENT
  Age: 70 Year
  Sex: Male
  Weight: 90.7194 kg

DRUGS (1)
  1. SPIRIVA [Suspect]
     Indication: CHRONIC OBSTRUCTIVE PULMONARY DISEASE
     Dosage: 1 PUFF
     Route: 055

REACTIONS (7)
  - ANXIETY [None]
  - CHILLS [None]
  - COUGH [None]
  - HALLUCINATION [None]
  - PHARYNGOLARYNGEAL PAIN [None]
  - SKIN BURNING SENSATION [None]
  - TREMOR [None]
